FAERS Safety Report 11695928 (Version 1)
Quarter: 2015Q4

REPORT INFORMATION
  Report Type: Spontaneous
  Country: FR (occurrence: FR)
  Receive Date: 20151104
  Receipt Date: 20151104
  Transmission Date: 20160304
  Serious: Yes (Other)
  Sender: FDA-Public Use
  Company Number: FR-TAKEDA-2015MPI007221

PATIENT

DRUGS (1)
  1. VELCADE [Suspect]
     Active Substance: BORTEZOMIB
     Indication: PLASMA CELL MYELOMA
     Dosage: UNK
     Route: 058

REACTIONS (4)
  - Inappropriate schedule of drug administration [Unknown]
  - Thrombocytopenia [Unknown]
  - Off label use [Unknown]
  - Haematotoxicity [Unknown]
